FAERS Safety Report 23910240 (Version 1)
Quarter: 2024Q2

REPORT INFORMATION
  Report Type: Spontaneous
  Country: CA (occurrence: CA)
  Receive Date: 20240528
  Receipt Date: 20240528
  Transmission Date: 20240715
  Serious: Yes (Hospitalization)
  Sender: FDA-Public Use
  Company Number: CA-FreseniusKabi-FK202408180

PATIENT
  Age: 63 Year
  Sex: Male

DRUGS (10)
  1. MIDAZOLAM [Suspect]
     Active Substance: MIDAZOLAM
     Indication: Partial seizures
     Dosage: ROUTE OF ADMIN: UNKNOWN?DOSAGE FORM: NOT SPECIFIED
  2. PROPOFOL [Suspect]
     Active Substance: PROPOFOL
     Indication: Partial seizures
     Dosage: FORM OF ADMIN: NOT SPECIFIED?ROUTE OF ADMIN: UNKNOWN
  3. AZATHIOPRINE [Suspect]
     Active Substance: AZATHIOPRINE
     Indication: Liver transplant
     Dosage: FOA: NOT SPECIFIED?ROA: UNKNOWN
  4. LACOSAMIDE [Suspect]
     Active Substance: LACOSAMIDE
     Indication: Partial seizures
     Dosage: ROA: UNKNOWN
  5. LEVETIRACETAM [Suspect]
     Active Substance: LEVETIRACETAM
     Indication: Partial seizures
     Dosage: FOA: NOT SPECIFIED?ROA: UNKNOWN
  6. PHENOBARBITAL [Suspect]
     Active Substance: PHENOBARBITAL
     Indication: Partial seizures
     Dosage: FOA: NOT SPECIFIED?ROA: UNKNOWN
  7. PHENYTOIN [Suspect]
     Active Substance: PHENYTOIN
     Indication: Partial seizures
     Dosage: ROA: UNKNOWN
  8. SIMULECT [Suspect]
     Active Substance: BASILIXIMAB
     Indication: Immunosuppression
     Dosage: FOA: POWDER FOR SOLUTION INTRAVENOUS
     Route: 042
  9. SULFAMETHOXAZOLE\TRIMETHOPRIM [Suspect]
     Active Substance: SULFAMETHOXAZOLE\TRIMETHOPRIM
     Indication: Antiviral prophylaxis
     Dosage: FOA: NOT SPECIFIED?ROA: UNKNOWN
  10. VALGANCICLOVIR [Suspect]
     Active Substance: VALGANCICLOVIR
     Indication: Antiviral prophylaxis
     Dosage: FOA: NOT SPECIFIED?ROA: UNKNOWN

REACTIONS (2)
  - Anaemia [Unknown]
  - Neutropenia [Unknown]
